FAERS Safety Report 25192214 (Version 2)
Quarter: 2025Q2

REPORT INFORMATION
  Report Type: Spontaneous
  Country: US (occurrence: US)
  Receive Date: 20250414
  Receipt Date: 20250606
  Transmission Date: 20250716
  Serious: No
  Sender: MYLAN
  Company Number: US-MYLANLABS-2025M1029259

PATIENT
  Sex: Female
  Weight: 89.36 kg

DRUGS (80)
  1. ESTRADIOL TRANSDERMAL SYSTEM [Suspect]
     Active Substance: ESTRADIOL
     Indication: Menopause
     Dosage: 0.0375 MILLIGRAM, QD (PER DAY, TWICE WEEKLY, APPLIED EVERY 3 DAYS)
  2. ESTRADIOL TRANSDERMAL SYSTEM [Suspect]
     Active Substance: ESTRADIOL
     Indication: Postmenopause
     Dosage: 0.0375 MILLIGRAM, QD (PER DAY, TWICE WEEKLY, APPLIED EVERY 3 DAYS)
     Route: 062
  3. ESTRADIOL TRANSDERMAL SYSTEM [Suspect]
     Active Substance: ESTRADIOL
     Dosage: 0.0375 MILLIGRAM, QD (PER DAY, TWICE WEEKLY, APPLIED EVERY 3 DAYS)
     Route: 062
  4. ESTRADIOL TRANSDERMAL SYSTEM [Suspect]
     Active Substance: ESTRADIOL
     Dosage: 0.0375 MILLIGRAM, QD (PER DAY, TWICE WEEKLY, APPLIED EVERY 3 DAYS)
  5. HUMALOG [Concomitant]
     Active Substance: INSULIN LISPRO
  6. HUMALOG [Concomitant]
     Active Substance: INSULIN LISPRO
     Route: 065
  7. HUMALOG [Concomitant]
     Active Substance: INSULIN LISPRO
     Route: 065
  8. HUMALOG [Concomitant]
     Active Substance: INSULIN LISPRO
  9. HYDROCHLOROTHIAZIDE [Concomitant]
     Active Substance: HYDROCHLOROTHIAZIDE
  10. HYDROCHLOROTHIAZIDE [Concomitant]
     Active Substance: HYDROCHLOROTHIAZIDE
     Route: 065
  11. HYDROCHLOROTHIAZIDE [Concomitant]
     Active Substance: HYDROCHLOROTHIAZIDE
     Route: 065
  12. HYDROCHLOROTHIAZIDE [Concomitant]
     Active Substance: HYDROCHLOROTHIAZIDE
  13. PROGESTERONE [Concomitant]
     Active Substance: PROGESTERONE
  14. PROGESTERONE [Concomitant]
     Active Substance: PROGESTERONE
     Route: 065
  15. PROGESTERONE [Concomitant]
     Active Substance: PROGESTERONE
     Route: 065
  16. PROGESTERONE [Concomitant]
     Active Substance: PROGESTERONE
  17. TESTOSTERONE [Concomitant]
     Active Substance: TESTOSTERONE
  18. TESTOSTERONE [Concomitant]
     Active Substance: TESTOSTERONE
     Route: 065
  19. TESTOSTERONE [Concomitant]
     Active Substance: TESTOSTERONE
     Route: 065
  20. TESTOSTERONE [Concomitant]
     Active Substance: TESTOSTERONE
  21. OMEPRAZOLE [Concomitant]
     Active Substance: OMEPRAZOLE
  22. OMEPRAZOLE [Concomitant]
     Active Substance: OMEPRAZOLE
     Route: 065
  23. OMEPRAZOLE [Concomitant]
     Active Substance: OMEPRAZOLE
     Route: 065
  24. OMEPRAZOLE [Concomitant]
     Active Substance: OMEPRAZOLE
  25. 3,3^-DIINDOLYLMETHANE [Concomitant]
     Active Substance: 3,3^-DIINDOLYLMETHANE
  26. 3,3^-DIINDOLYLMETHANE [Concomitant]
     Active Substance: 3,3^-DIINDOLYLMETHANE
     Route: 065
  27. 3,3^-DIINDOLYLMETHANE [Concomitant]
     Active Substance: 3,3^-DIINDOLYLMETHANE
     Route: 065
  28. 3,3^-DIINDOLYLMETHANE [Concomitant]
     Active Substance: 3,3^-DIINDOLYLMETHANE
  29. BENFOTIAMINE [Concomitant]
     Active Substance: BENFOTIAMINE
  30. BENFOTIAMINE [Concomitant]
     Active Substance: BENFOTIAMINE
     Route: 065
  31. BENFOTIAMINE [Concomitant]
     Active Substance: BENFOTIAMINE
     Route: 065
  32. BENFOTIAMINE [Concomitant]
     Active Substance: BENFOTIAMINE
  33. VITAMIN C [Concomitant]
     Active Substance: ASCORBIC ACID
  34. VITAMIN C [Concomitant]
     Active Substance: ASCORBIC ACID
     Route: 065
  35. VITAMIN C [Concomitant]
     Active Substance: ASCORBIC ACID
     Route: 065
  36. VITAMIN C [Concomitant]
     Active Substance: ASCORBIC ACID
  37. VITAMIN D3 [Concomitant]
     Active Substance: CHOLECALCIFEROL
  38. VITAMIN D3 [Concomitant]
     Active Substance: CHOLECALCIFEROL
     Route: 065
  39. VITAMIN D3 [Concomitant]
     Active Substance: CHOLECALCIFEROL
     Route: 065
  40. VITAMIN D3 [Concomitant]
     Active Substance: CHOLECALCIFEROL
  41. MENAQUINONE 6 [Concomitant]
     Active Substance: MENAQUINONE 6
  42. MENAQUINONE 6 [Concomitant]
     Active Substance: MENAQUINONE 6
     Route: 065
  43. MENAQUINONE 6 [Concomitant]
     Active Substance: MENAQUINONE 6
     Route: 065
  44. MENAQUINONE 6 [Concomitant]
     Active Substance: MENAQUINONE 6
  45. CALCIUM [Concomitant]
     Active Substance: CALCIUM
  46. CALCIUM [Concomitant]
     Active Substance: CALCIUM
     Route: 065
  47. CALCIUM [Concomitant]
     Active Substance: CALCIUM
     Route: 065
  48. CALCIUM [Concomitant]
     Active Substance: CALCIUM
  49. MAGNESIUM [Concomitant]
     Active Substance: MAGNESIUM
  50. MAGNESIUM [Concomitant]
     Active Substance: MAGNESIUM
     Route: 065
  51. MAGNESIUM [Concomitant]
     Active Substance: MAGNESIUM
     Route: 065
  52. MAGNESIUM [Concomitant]
     Active Substance: MAGNESIUM
  53. REPATHA [Concomitant]
     Active Substance: EVOLOCUMAB
  54. REPATHA [Concomitant]
     Active Substance: EVOLOCUMAB
     Route: 065
  55. REPATHA [Concomitant]
     Active Substance: EVOLOCUMAB
     Route: 065
  56. REPATHA [Concomitant]
     Active Substance: EVOLOCUMAB
  57. ESTRADIOL [Concomitant]
     Active Substance: ESTRADIOL
  58. ESTRADIOL [Concomitant]
     Active Substance: ESTRADIOL
     Route: 065
  59. ESTRADIOL [Concomitant]
     Active Substance: ESTRADIOL
     Route: 065
  60. ESTRADIOL [Concomitant]
     Active Substance: ESTRADIOL
  61. PRASTERONE [Concomitant]
     Active Substance: PRASTERONE
  62. PRASTERONE [Concomitant]
     Active Substance: PRASTERONE
     Route: 065
  63. PRASTERONE [Concomitant]
     Active Substance: PRASTERONE
     Route: 065
  64. PRASTERONE [Concomitant]
     Active Substance: PRASTERONE
  65. AMLODIPINE [Concomitant]
     Active Substance: AMLODIPINE BESYLATE
  66. AMLODIPINE [Concomitant]
     Active Substance: AMLODIPINE BESYLATE
     Route: 065
  67. AMLODIPINE [Concomitant]
     Active Substance: AMLODIPINE BESYLATE
     Route: 065
  68. AMLODIPINE [Concomitant]
     Active Substance: AMLODIPINE BESYLATE
  69. BENAZEPRIL [Concomitant]
     Active Substance: BENAZEPRIL HYDROCHLORIDE
  70. BENAZEPRIL [Concomitant]
     Active Substance: BENAZEPRIL HYDROCHLORIDE
     Route: 065
  71. BENAZEPRIL [Concomitant]
     Active Substance: BENAZEPRIL HYDROCHLORIDE
     Route: 065
  72. BENAZEPRIL [Concomitant]
     Active Substance: BENAZEPRIL HYDROCHLORIDE
  73. PREGNENOLONE [Concomitant]
     Active Substance: PREGNENOLONE
  74. PREGNENOLONE [Concomitant]
     Active Substance: PREGNENOLONE
     Route: 065
  75. PREGNENOLONE [Concomitant]
     Active Substance: PREGNENOLONE
     Route: 065
  76. PREGNENOLONE [Concomitant]
     Active Substance: PREGNENOLONE
  77. VITAMIN D NOS [Suspect]
     Active Substance: CHOLECALCIFEROL\ERGOCALCIFEROL
  78. VITAMIN D NOS [Suspect]
     Active Substance: CHOLECALCIFEROL\ERGOCALCIFEROL
     Route: 065
  79. VITAMIN D NOS [Suspect]
     Active Substance: CHOLECALCIFEROL\ERGOCALCIFEROL
     Route: 065
  80. VITAMIN D NOS [Suspect]
     Active Substance: CHOLECALCIFEROL\ERGOCALCIFEROL

REACTIONS (7)
  - Application site irritation [Unknown]
  - Application site pruritus [Unknown]
  - Application site rash [Unknown]
  - Application site pain [Unknown]
  - Application site erythema [Unknown]
  - Application site swelling [Unknown]
  - Hypersensitivity [Unknown]

NARRATIVE: CASE EVENT DATE: 20250101
